FAERS Safety Report 9095338 (Version 2)
Quarter: 2013Q1

REPORT INFORMATION
  Report Type: Spontaneous
  Country: US (occurrence: None)
  Receive Date: 20130123
  Receipt Date: 20130220
  Transmission Date: 20140127
  Serious: Yes (Hospitalization, Other)
  Sender: FDA-Public Use
  Company Number: 1563732

PATIENT
  Age: 9 Year
  Sex: Female

DRUGS (25)
  1. METHOTREXATE INJECTION USP [Suspect]
     Indication: ACUTE LYMPHOCYTIC LEUKAEMIA
     Route: 037
     Dates: start: 20121127
  2. DASATINIB [Suspect]
     Indication: ACUTE LYMPHOCYTIC LEUKAEMIA
     Route: 048
     Dates: start: 20121120, end: 20121208
  3. IFOSFAMIDE [Suspect]
     Indication: ACUTE LYMPHOCYTIC LEUKAEMIA
     Route: 042
     Dates: start: 20121128, end: 20121130
  4. ETOPOSIDE [Suspect]
     Indication: ACUTE LYMPHOCYTIC LEUKAEMIA
     Route: 042
     Dates: start: 20121221, end: 20121222
  5. VINCRISTINE SULFATE [Suspect]
     Indication: ACUTE LYMPHOCYTIC LEUKAEMIA
     Route: 042
     Dates: start: 20121128
  6. CYTARABINE [Suspect]
     Indication: ACUTE LYMPHOCYTIC LEUKAEMIA
     Route: 042
     Dates: start: 20121219, end: 20121220
  7. DAUNORUBICIN HYDROCHLORIDE [Suspect]
     Indication: ACUTE LYMPHOCYTIC LEUKAEMIA
     Route: 042
     Dates: start: 20121201, end: 20121201
  8. PEGASPARGASE [Suspect]
     Indication: ACUTE LYMPHOCYTIC LEUKAEMIA
     Route: 042
     Dates: start: 20121202, end: 20121202
  9. ASPARAGINASE [Suspect]
     Indication: ACUTE LYMPHOCYTIC LEUKAEMIA
     Route: 042
     Dates: start: 20121202, end: 20121202
  10. DEXAMETHASONE [Suspect]
     Indication: ACUTE LYMPHOCYTIC LEUKAEMIA
     Route: 048
     Dates: start: 20121127, end: 20121201
  11. GRANULOCYTE COLONY STIMULATING FACTOR [Suspect]
     Indication: ACUTE LYMPHOCYTIC LEUKAEMIA
     Route: 058
     Dates: start: 20121224
  12. HYDROCORTISONE [Suspect]
     Indication: PRODUCT USED FOR UNKNOWN INDICATION
     Route: 037
     Dates: start: 20121224
  13. DIPHENHYDRAMINE HYDROCHLORIDE [Concomitant]
  14. ONDANSETRON HYDROCHLORIDE [Concomitant]
  15. SODIUM CHLORIDE [Concomitant]
  16. LORATADINE [Concomitant]
  17. DEXTROSE [Concomitant]
  18. EPINEPHRINE [Concomitant]
  19. FUROSEMIDE [Concomitant]
  20. CHLORHEXIDINE GLUCONATE [Concomitant]
  21. FAMOTIDINE [Concomitant]
  22. FOLINIC ACID [Concomitant]
  23. SULFMETHOXAZOLE W/TRIMETHOPRIM [Concomitant]
  24. ACETAMINOPHEN [Concomitant]
  25. IPILIMUMAB [Concomitant]

REACTIONS (24)
  - Febrile neutropenia [None]
  - Hyponatraemia [None]
  - Enterocolitis [None]
  - Hypokalaemia [None]
  - Dehydration [None]
  - Mucosal inflammation [None]
  - Lobar pneumonia [None]
  - Diarrhoea [None]
  - White blood cell count decreased [None]
  - Red blood cell count decreased [None]
  - Haemoglobin decreased [None]
  - Haematocrit decreased [None]
  - Lymphocyte percentage increased [None]
  - Basophil percentage increased [None]
  - Lymphocyte count decreased [None]
  - Blood chloride decreased [None]
  - Alanine aminotransferase increased [None]
  - Blood alkaline phosphatase decreased [None]
  - Protein total decreased [None]
  - Blood albumin decreased [None]
  - Blood calcium decreased [None]
  - Toxicity to various agents [None]
  - Thrombocytopenia [None]
  - Blood glucose increased [None]
